FAERS Safety Report 4531302-6 (Version None)
Quarter: 2004Q4

REPORT INFORMATION
  Report Type: 
  Country: None (occurrence: None)
  Receive Date: 20041206
  Receipt Date: 20041006
  Transmission Date: 20050328
  Serious: No
  Sender: FDA-Public Use
  Company Number: USA041080393

PATIENT
  Age: 49 Year
  Sex: Female
  Weight: 51 kg

DRUGS (3)
  1. CYMBALTA [Suspect]
     Indication: FIBROMYALGIA
     Dosage: 60 MG/2 DAY
     Dates: start: 20041001, end: 20041002
  2. SOMA [Concomitant]
  3. FIORICET [Concomitant]

REACTIONS (7)
  - ABDOMINAL PAIN UPPER [None]
  - ANOREXIA [None]
  - HYPERHIDROSIS [None]
  - NAUSEA [None]
  - PRESCRIBED OVERDOSE [None]
  - RETCHING [None]
  - VISION BLURRED [None]
